FAERS Safety Report 7606915-5 (Version None)
Quarter: 2011Q3

REPORT INFORMATION
  Report Type: 
  Country: None (occurrence: None)
  Receive Date: 20110713
  Receipt Date: 20110709
  Transmission Date: 20111222
  Serious: Yes (Death, Hospitalization)
  Sender: FDA-Public Use
  Company Number: US-BRISTOL-MYERS SQUIBB COMPANY-15796832

PATIENT
  Age: 31 Year
  Sex: Male

DRUGS (5)
  1. CALCIUM CHLORIDE [Concomitant]
     Route: 042
     Dates: start: 20110621, end: 20110621
  2. IPILIMUMAB [Suspect]
     Indication: MALIGNANT MELANOMA
     Route: 042
     Dates: start: 20110309, end: 20110511
  3. MAGNESIUM SULFATE [Concomitant]
     Dates: start: 20110621, end: 20110628
  4. HYDROCORTISONE [Concomitant]
     Route: 042
     Dates: start: 20110621, end: 20110628
  5. POTASSIUM PHOSPHATES [Concomitant]
     Dates: start: 20110621, end: 20110628

REACTIONS (3)
  - SEPSIS [None]
  - ENTEROCOLITIS [None]
  - ILEAL PERFORATION [None]
